FAERS Safety Report 9806721 (Version 1)
Quarter: 2014Q1

REPORT INFORMATION
  Report Type: Spontaneous
  Country: US (occurrence: US)
  Receive Date: 20140109
  Receipt Date: 20140109
  Transmission Date: 20141002
  Serious: No
  Sender: FDA-Public Use
  Company Number: US-ENDO PHARMACEUTICALS INC.-FORT20130384

PATIENT
  Age: 71 Year
  Sex: Male

DRUGS (2)
  1. FORTESTA [Suspect]
     Indication: BLOOD TESTOSTERONE DECREASED
     Route: 061
     Dates: start: 2013, end: 201310
  2. FORTESTA [Suspect]
     Route: 061
     Dates: start: 201311

REACTIONS (1)
  - Prostatomegaly [Recovered/Resolved]
